FAERS Safety Report 7283843-9 (Version None)
Quarter: 2011Q1

REPORT INFORMATION
  Report Type: 
  Country: None (occurrence: None)
  Receive Date: 20110126
  Receipt Date: 20101231
  Transmission Date: 20110831
  Serious: Yes (Death)
  Sender: FDA-Public Use
  Company Number: AUR-APL-2011-00135

PATIENT
  Age: 44 Year
  Sex: Female

DRUGS (6)
  1. LISINOPRIL [Suspect]
  2. METOPROLOL [Suspect]
  3. FLUOXETINE [Suspect]
  4. TRAZODONE [Suspect]
  5. ARIPIPRAZOLE [Suspect]
  6. GABAPENTIN [Suspect]

REACTIONS (1)
  - COMPLETED SUICIDE [None]
